FAERS Safety Report 8072223-4 (Version None)
Quarter: 2012Q1

REPORT INFORMATION
  Report Type: 
  Country: None (occurrence: None)
  Receive Date: 20120126
  Receipt Date: 20120123
  Transmission Date: 20120608
  Serious: No
  Sender: FDA-Public Use
  Company Number: US-PFIZER INC-2012019070

PATIENT
  Sex: Female
  Weight: 46.712 kg

DRUGS (4)
  1. CHANTIX [Suspect]
     Indication: SMOKING CESSATION THERAPY
     Dosage: 0.5 MG, DAILY
     Route: 048
     Dates: start: 20080201, end: 20080101
  2. CHANTIX [Suspect]
     Dosage: UNK
     Route: 048
     Dates: start: 20080101, end: 20080101
  3. IBUPROFEN (ADVIL) [Concomitant]
     Indication: HEADACHE
     Dosage: 400 MG, AS NEEDED
     Route: 048
  4. MELOXICAM [Concomitant]
     Indication: ARTHRALGIA
     Dosage: 50 MG, DAILY

REACTIONS (1)
  - NAUSEA [None]
